FAERS Safety Report 4462849-9 (Version None)
Quarter: 2004Q3

REPORT INFORMATION
  Report Type: 
  Country: None (occurrence: None)
  Receive Date: 20040927
  Receipt Date: 20040916
  Transmission Date: 20050211
  Serious: No
  Sender: FDA-Public Use
  Company Number: 04H-013-0273775-00

PATIENT
  Age: 36 Year
  Sex: Female

DRUGS (2)
  1. MORPHINE SULFATE INJ [Suspect]
     Indication: ANALGESIC EFFECT
     Dosage: 500 MCG, NOT REPORTED, INTRATHECAL; SEE IMAGE
     Route: 037
  2. SODIUM CHLORIDE INJ [Concomitant]

REACTIONS (2)
  - NAUSEA [None]
  - VOMITING [None]
